FAERS Safety Report 6235363-8 (Version None)
Quarter: 2009Q2

REPORT INFORMATION
  Report Type: 
  Country: None (occurrence: None)
  Receive Date: 20090615
  Receipt Date: 20090602
  Transmission Date: 20091009
  Serious: Yes (Hospitalization)
  Sender: FDA-Public Use
  Company Number: 006477

PATIENT
  Age: 82 Year
  Sex: Male
  Weight: 55 kg

DRUGS (21)
  1. PLETAL [Suspect]
     Indication: CEREBRAL INFARCTION
     Dosage: 100 MG, BID ORAL
     Route: 048
     Dates: start: 20081117, end: 20081208
  2. LIPOVAS (SIMVASTATIN) TABLET [Concomitant]
  3. LOSARTAN POTASSIUM [Concomitant]
  4. TAKEPRON (LANSOPRAZOLE) TABLET [Concomitant]
  5. BAYASPIRIN (ACETYLSALICYLIC ACID) TABLET [Concomitant]
  6. AMARYL [Concomitant]
  7. SIGMART (NICORANDIL) TABLET [Concomitant]
  8. MAGMITT (MAGNESIUM OXIDE) TABLET [Concomitant]
  9. MUCOSTA (REBAMIPIDE) TABLET [Concomitant]
  10. JUVELA N (TOCOPHERYL NICOTINATE) CAPSULE [Concomitant]
  11. KIPRESS (MONTELUKAST SODIUM) TABLET [Concomitant]
  12. YODEL-S (SENNA EXTRACT) TABLET [Concomitant]
  13. ISCOTIN (ISONIAZID) TABLET [Concomitant]
  14. BONALON (ALENDRONATE SODIUM) TABLET [Concomitant]
  15. PREDNISOLONE [Concomitant]
  16. SOL-MELCORT (METHYLPREDNISOLONE SODIUM SUCCINATE) INJECTION [Concomitant]
  17. DORMICUM (MIDAZOLAM) INJECTION [Concomitant]
  18. LEPETAN (BUPRENORPHINE) INJECTION [Concomitant]
  19. CIPROXAN (CIPROFLOXACIN) INJECTION [Concomitant]
  20. MEROPEN (MEROPENEM TRIHYDRATE) INJECTION [Concomitant]
  21. ELASPOL (SIVELESTAT SODIUM HYDRATE) INJECTION [Concomitant]

REACTIONS (4)
  - CARDIAC FAILURE ACUTE [None]
  - CONDITION AGGRAVATED [None]
  - INTERSTITIAL LUNG DISEASE [None]
  - PNEUMONIA [None]
